FAERS Safety Report 7898883-6 (Version None)
Quarter: 2011Q4

REPORT INFORMATION
  Report Type: 
  Country: None (occurrence: None)
  Receive Date: 20111107
  Receipt Date: 20111101
  Transmission Date: 20120403
  Serious: Yes (Other)
  Sender: FDA-Public Use
  Company Number: JP-PFIZER INC-2011266432

PATIENT
  Age: 58 Year
  Sex: Female

DRUGS (5)
  1. CLINDAMYCIN HCL [Suspect]
     Indication: POST PROCEDURAL INFECTION
     Dosage: 1200 MG /DAY
     Route: 041
     Dates: start: 20111020, end: 20111021
  2. ADONA [Suspect]
     Indication: HAEMOSTASIS
     Dosage: UNK
     Route: 041
     Dates: start: 20111020, end: 20111021
  3. BETAMETHASONE [Concomitant]
     Dosage: UNK
  4. BESTRON [Concomitant]
     Dosage: UNK
  5. SOLU-CORTEF [Suspect]
     Indication: LARYNGEAL OEDEMA
     Dosage: 100 MG/ DAY
     Route: 041
     Dates: start: 20111020, end: 20111020

REACTIONS (2)
  - PYREXIA [None]
  - URTICARIA [None]
